FAERS Safety Report 17799725 (Version 1)
Quarter: 2020Q2

REPORT INFORMATION
  Report Type: Report from Study
  Country: CN (occurrence: CN)
  Receive Date: 20200518
  Receipt Date: 20200518
  Transmission Date: 20200714
  Serious: Yes (Death, Other)
  Sender: FDA-Public Use
  Company Number: CN-ASTRAZENECA-2020SE61964

PATIENT
  Age: 74 Year
  Sex: Female
  Weight: 40 kg

DRUGS (3)
  1. TAGRISSO [Suspect]
     Active Substance: OSIMERTINIB
     Indication: LUNG ADENOCARCINOMA
     Dosage: 1 TABLET DAILY IN THE INITIAL 4 DAYS, 2 TABLETS TAGRISSO DAILY IN THE NEXT 10 DAYS
     Route: 048
     Dates: start: 20200420
  2. DACOMITINIB [Concomitant]
     Active Substance: DACOMITINIB
     Dosage: IN ONE DAY BEFORE THE COMA, 1 TABLET TOOK AT 7 AM AND ANOTHER TABLET OF DACOMITINIB WAS TOOK IN T...
  3. IRESSA [Suspect]
     Active Substance: GEFITINIB
     Route: 048

REACTIONS (10)
  - Lung adenocarcinoma [Fatal]
  - Coma [Unknown]
  - Mental disorder [Unknown]
  - Fatigue [Not Recovered/Not Resolved]
  - Gait inability [Unknown]
  - Malignant neoplasm progression [Unknown]
  - Weight decreased [Unknown]
  - Brain neoplasm [Unknown]
  - Asthenia [Unknown]
  - Somnolence [Unknown]
